FAERS Safety Report 17246823 (Version 2)
Quarter: 2020Q1

REPORT INFORMATION
  Report Type: Spontaneous
  Country: US (occurrence: US)
  Receive Date: 20200108
  Receipt Date: 20200212
  Transmission Date: 20200409
  Serious: No
  Sender: FDA-Public Use
  Company Number: US-PFIZER INC-2016505756

PATIENT
  Age: 65 Year
  Sex: Female
  Weight: 81.65 kg

DRUGS (2)
  1. SOMAVERT [Suspect]
     Active Substance: PEGVISOMANT
     Indication: GIGANTISM
     Dosage: 35 MG, 1X/DAY (7 DAYS/WK; 15MG AND 20MG INJECTED ONCE A DAY)
     Dates: start: 20150127
  2. SOMAVERT [Suspect]
     Active Substance: PEGVISOMANT
     Indication: ACROMEGALY
     Dosage: 35 MG, UNK (SOMAVERT 15 MG AND SOMAVERT 20 MG)
     Dates: start: 20150126

REACTIONS (3)
  - Off label use [Unknown]
  - Product use issue [Unknown]
  - Constipation [Unknown]

NARRATIVE: CASE EVENT DATE: 2015
